FAERS Safety Report 5007931-2 (Version None)
Quarter: 2006Q2

REPORT INFORMATION
  Report Type: 
  Country: None (occurrence: None)
  Receive Date: 20060517
  Receipt Date: 20060503
  Transmission Date: 20061013
  Serious: Yes (Other)
  Sender: FDA-Public Use
  Company Number: 2006RR-02192

PATIENT
  Age: 35 Year
  Sex: Female

DRUGS (2)
  1. FLUOXETINE [Suspect]
     Indication: DEPRESSION
     Dosage: 40 MG
     Dates: start: 20010101, end: 20020101
  2. BUPROPION          (BUPROPION) [Suspect]
     Indication: LIBIDO DECREASED
     Dosage: 100 MG
     Dates: end: 20020101

REACTIONS (5)
  - CLITORAL ENGORGEMENT [None]
  - DRUG INTERACTION [None]
  - LIBIDO DECREASED [None]
  - LIBIDO INCREASED [None]
  - SEXUAL DYSFUNCTION [None]
